FAERS Safety Report 7707496-8 (Version None)
Quarter: 2011Q3

REPORT INFORMATION
  Report Type: 
  Country: None (occurrence: None)
  Receive Date: 20110819
  Receipt Date: 20110804
  Transmission Date: 20111222
  Serious: Yes (Death)
  Sender: FDA-Public Use
  Company Number: FK201101616

PATIENT
  Age: 57 Year
  Sex: Female

DRUGS (1)
  1. FLUOROURACIL [Suspect]
     Indication: COLORECTAL CANCER STAGE III
     Dates: start: 20110224, end: 20110408

REACTIONS (3)
  - LUNG INFECTION [None]
  - PULMONARY TOXICITY [None]
  - INTERSTITIAL LUNG DISEASE [None]
